FAERS Safety Report 7711686-8 (Version None)
Quarter: 2011Q3

REPORT INFORMATION
  Report Type: 
  Country: None (occurrence: None)
  Receive Date: 20110826
  Receipt Date: 20110822
  Transmission Date: 20111222
  Serious: Yes (Other)
  Sender: FDA-Public Use
  Company Number: US-JNJFOC-20101101875

PATIENT
  Age: 20 Year
  Sex: Female

DRUGS (2)
  1. ORTHO TRI-CYCLEN LO [Suspect]
     Indication: OVARIAN CYST
     Route: 048
     Dates: start: 20101024, end: 20101026
  2. ANTIHISTAMINES [Suspect]
     Indication: HYPERSENSITIVITY
     Route: 042
     Dates: start: 20101026

REACTIONS (5)
  - OFF LABEL USE [None]
  - SYNCOPE [None]
  - EYE SWELLING [None]
  - HYPERSENSITIVITY [None]
  - HYPOTENSION [None]
